FAERS Safety Report 5516856-5 (Version None)
Quarter: 2007Q4

REPORT INFORMATION
  Report Type: 
  Country: None (occurrence: None)
  Receive Date: 20071114
  Receipt Date: 20071102
  Transmission Date: 20080405
  Serious: Yes (Death)
  Sender: FDA-Public Use
  Company Number: US-AMGEN-STX233300

PATIENT
  Sex: Male
  Weight: 89.4 kg

DRUGS (28)
  1. ENBREL [Suspect]
     Indication: RHEUMATOID ARTHRITIS
     Route: 058
     Dates: start: 20000629
  2. ELAVIL [Concomitant]
  3. TOLECTIN [Concomitant]
     Dates: start: 19900101
  4. VOLTAREN-XR [Concomitant]
  5. DARVOCET [Concomitant]
  6. PEPCID [Concomitant]
  7. ACIPHEX [Concomitant]
  8. CARDIZEM CD [Concomitant]
  9. HYTRIN [Concomitant]
  10. NORVASC [Concomitant]
  11. LISINOPRIL [Concomitant]
  12. DOXYCYCLINE [Concomitant]
  13. ERYTHROMYCIN [Concomitant]
  14. ZOVIRAX [Concomitant]
  15. BIAXIN [Concomitant]
  16. HISMANAL [Concomitant]
  17. NASACORT [Concomitant]
  18. TUSSI-ORGANIDIN [Concomitant]
  19. ENTEX SOLUTION [Concomitant]
  20. CLARITIN [Concomitant]
  21. FLONASE [Concomitant]
  22. VENTOLIN [Concomitant]
  23. ADVAIR DISKUS 100/50 [Concomitant]
  24. COMBIVENT [Concomitant]
  25. FOSAMAX [Concomitant]
  26. ASTELIN [Concomitant]
  27. RESTASIS [Concomitant]
  28. MYLANTA [Concomitant]

REACTIONS (4)
  - ARTHRALGIA [None]
  - ASPARTATE AMINOTRANSFERASE INCREASED [None]
  - BLOOD ALKALINE PHOSPHATASE INCREASED [None]
  - COLON CANCER METASTATIC [None]
